FAERS Safety Report 20083334 (Version 1)
Quarter: 2021Q4

REPORT INFORMATION
  Report Type: Spontaneous
  Country: DE (occurrence: DE)
  Receive Date: 20211117
  Receipt Date: 20211117
  Transmission Date: 20220303
  Serious: Yes (Hospitalization)
  Sender: FDA-Public Use
  Company Number: DE-ADRED-07049-03

PATIENT
  Age: 73 Year
  Sex: Male
  Weight: 74 kg

DRUGS (11)
  1. BISOPROLOL [Suspect]
     Active Substance: BISOPROLOL
     Indication: Product used for unknown indication
     Dosage: 2.5 MILLIGRAM, QD (2.5 MG, 1-0-0-0)
  2. AZITHROMYCIN [Concomitant]
     Active Substance: AZITHROMYCIN
     Dosage: 250 MILLIGRAM, QD (250 MG, 1-0-0-0)
  3. CHOLECALCIFEROL [Concomitant]
     Active Substance: CHOLECALCIFEROL
     Dosage: 1000 INTERNATIONAL UNIT, QD (1000 IE, 1-0-0-0)
  4. ACETYLCYSTEINE [Concomitant]
     Active Substance: ACETYLCYSTEINE
     Dosage: 100 MILLIGRAM, QD (100 MG, 1-0-0-0)
  5. KALIUM                             /00031401/ [Concomitant]
     Dosage: UNK UNK, QD (1-0-0-0)
  6. MORPHIN                            /00036302/ [Concomitant]
     Dosage: 10 MILLIGRAM, QD (10 MG, 1-0-0-0)
  7. BUDESONIDE [Concomitant]
     Active Substance: BUDESONIDE
     Dosage: 400 MICROGRAM, BID (400 ?G, 1-0-1-0)
  8. MIRTAZAPINE [Concomitant]
     Active Substance: MIRTAZAPINE
     Dosage: 15 MILLIGRAM, QD (15 MG, 0-0-1-0)
  9. GLYCOPYRROLATE\INDACATEROL MALEATE [Concomitant]
     Active Substance: GLYCOPYRROLATE\INDACATEROL MALEATE
     Dosage: 85|43 ?G, 1-0-0-0
  10. SIMVASTATIN [Concomitant]
     Active Substance: SIMVASTATIN
     Dosage: 20 MILLIGRAM, QD (20 MG, 0-0-1-0)
  11. POLYETHYLENE GLYCOL 3350\POTASSIUM CHLORIDE\SODIUM BICARBONATE\SODIUM [Concomitant]
     Active Substance: POLYETHYLENE GLYCOL 3350\POTASSIUM CHLORIDE\SODIUM BICARBONATE\SODIUM CHLORIDE\SODIUM SULFATE
     Dosage: UNK UNK, QD (0-1-0-0)

REACTIONS (11)
  - Systemic infection [Unknown]
  - Anaemia [Unknown]
  - Acute respiratory failure [Unknown]
  - Dyspnoea [Unknown]
  - Hyperglycaemia [Unknown]
  - Coronavirus test positive [Unknown]
  - Musculoskeletal pain [Unknown]
  - Cough [Unknown]
  - Condition aggravated [Unknown]
  - Renal impairment [Unknown]
  - Electrocardiogram abnormal [Unknown]
